FAERS Safety Report 11212334 (Version 2)
Quarter: 2015Q4

REPORT INFORMATION
  Report Type: Spontaneous
  Country: US (occurrence: US)
  Receive Date: 20150623
  Receipt Date: 20151013
  Transmission Date: 20160304
  Serious: No
  Sender: FDA-Public Use
  Company Number: US-PFIZER INC-2015204709

PATIENT
  Age: 56 Year
  Sex: Male
  Weight: 73 kg

DRUGS (9)
  1. TRAMADOL. [Concomitant]
     Active Substance: TRAMADOL
     Dosage: 50 MG, DAILY
  2. MAGNESIUM SUPPLEMENT [Concomitant]
     Dosage: 5 DF, DAILY, (2 TABLETS A.M. 2 TABLETS P.M. 1 TABLET AT BEDTIME)
  3. PROCARDIA [Suspect]
     Active Substance: NIFEDIPINE
     Dosage: 10 MG, 3X/DAY
  4. TRENTAL [Concomitant]
     Active Substance: PENTOXIFYLLINE
     Dosage: 400 MG, 3X/DAY
     Route: 048
     Dates: start: 20150421
  5. METOPROLOL TARTRATE. [Concomitant]
     Active Substance: METOPROLOL TARTRATE
     Dosage: 25 MG, 2X/DAY
  6. REVATIO [Suspect]
     Active Substance: SILDENAFIL CITRATE
     Dosage: 20 MG, 2X/DAY
  7. ASPIRIN. [Concomitant]
     Active Substance: ASPIRIN
     Dosage: 81 MG, DAILY
  8. NEXIUM [Concomitant]
     Active Substance: ESOMEPRAZOLE MAGNESIUM
     Dosage: 40 MG, 2X/DAY
  9. PROZAC [Concomitant]
     Active Substance: FLUOXETINE HYDROCHLORIDE
     Dosage: 20 MG, DAILY
     Route: 048
     Dates: start: 20150421

REACTIONS (1)
  - Blood magnesium decreased [Unknown]
